FAERS Safety Report 7561725-2 (Version None)
Quarter: 2011Q2

REPORT INFORMATION
  Report Type: 
  Country: None (occurrence: None)
  Receive Date: 20110621
  Receipt Date: 20101213
  Transmission Date: 20111010
  Serious: No
  Sender: FDA-Public Use
  Company Number: US-ASTRAZENECA-2010SE58956

PATIENT
  Age: 56 Year
  Sex: Female

DRUGS (1)
  1. RHINOCORT [Suspect]
     Indication: MULTIPLE ALLERGIES
     Dosage: 64 MCG DAILY ONE SPRAY IN EACH NOSTRIL
     Route: 045
     Dates: start: 20020101

REACTIONS (6)
  - DYSGEUSIA [None]
  - DYSPHAGIA [None]
  - NAUSEA [None]
  - HEADACHE [None]
  - VOMITING [None]
  - ABDOMINAL DISTENSION [None]
